FAERS Safety Report 7962236-2 (Version None)
Quarter: 2011Q4

REPORT INFORMATION
  Report Type: 
  Country: None (occurrence: None)
  Receive Date: 20111207
  Receipt Date: 20111201
  Transmission Date: 20120403
  Serious: Yes (Other)
  Sender: FDA-Public Use
  Company Number: PHHY2011NL099777

PATIENT
  Sex: Male

DRUGS (3)
  1. ZOMETA [Suspect]
     Dosage: 4 MG/5 ML, CONCENTRATE FOR SOLUTION FOR IV INFUSION, 1X PER 28 DAYS
     Dates: start: 20111111
  2. ZOMETA [Suspect]
     Indication: PROSTATE CANCER METASTATIC
     Dosage: 4 MG/5 ML, CONCENTRATE FOR SOLUTION FOR IV INFUSION, 1X PER 28 DAYS
     Dates: start: 20110815
  3. ZOMETA [Suspect]
     Dosage: 4 MG/5 ML, CONCENTRATE FOR SOLUTION FOR IV INFUSION, 1X PER 28 DAYS
     Dates: start: 20111015

REACTIONS (4)
  - ASTHENIA [None]
  - MUSCULAR WEAKNESS [None]
  - TERMINAL STATE [None]
  - GENERAL PHYSICAL HEALTH DETERIORATION [None]
